FAERS Safety Report 8824927 (Version 1)
Quarter: 2012Q4

REPORT INFORMATION
  Report Type: 
  Country: CN (occurrence: CN)
  Receive Date: 20121004
  Receipt Date: 20121004
  Transmission Date: 20130627
  Serious: Yes (Hospitalization)
  Sender: FDA-Public Use
  Company Number: CN-JNJFOC-20120912594

PATIENT
  Age: 1 Year
  Sex: Female

DRUGS (1)
  1. PARACETAMOL [Suspect]
     Indication: PYREXIA
     Route: 048
     Dates: start: 20090622, end: 20090622

REACTIONS (3)
  - Eyelid oedema [Recovered/Resolved]
  - Rash generalised [Recovered/Resolved]
  - Oedema peripheral [Recovered/Resolved]
